FAERS Safety Report 21109989 (Version 1)
Quarter: 2022Q3

REPORT INFORMATION
  Report Type: Spontaneous
  Country: US (occurrence: None)
  Receive Date: 20220720
  Receipt Date: 20220720
  Transmission Date: 20221027
  Serious: No
  Sender: FDA-Public Use
  Company Number: None

PATIENT
  Sex: Female

DRUGS (1)
  1. RINVOQ [Suspect]
     Active Substance: UPADACITINIB
     Indication: Crohn^s disease
     Dosage: 45MG DAILY BY MOUTH
     Route: 048
     Dates: start: 20220624

REACTIONS (3)
  - Gastric disorder [None]
  - Abdominal discomfort [None]
  - Pain [None]
